FAERS Safety Report 6999161-X (Version None)
Quarter: 2010Q3

REPORT INFORMATION
  Report Type: 
  Country: None (occurrence: None)
  Receive Date: 20100920
  Receipt Date: 20100621
  Transmission Date: 20110219
  Serious: Yes (Other)
  Sender: FDA-Public Use
  Company Number: US-ASTRAZENECA-2010SE28938

PATIENT
  Sex: Female
  Weight: 96.2 kg

DRUGS (8)
  1. SEROQUEL [Suspect]
     Indication: BIPOLAR DISORDER
     Dosage: FOUR TIMES A DAY
     Route: 048
     Dates: start: 20000101
  2. SEROQUEL [Suspect]
     Indication: DEPRESSION
     Dosage: FOUR TIMES A DAY
     Route: 048
     Dates: start: 20000101
  3. DEPAKOTE [Concomitant]
     Route: 048
  4. XANAX [Concomitant]
     Route: 048
  5. PREMARIN [Concomitant]
  6. LASIX [Concomitant]
     Route: 048
  7. SYNTHROID [Concomitant]
     Route: 048
  8. NAPROSYN [Concomitant]
     Indication: ARTHRITIS
     Route: 048

REACTIONS (1)
  - NEUROLEPTIC MALIGNANT SYNDROME [None]
